FAERS Safety Report 5484261-6 (Version None)
Quarter: 2007Q4

REPORT INFORMATION
  Report Type: 
  Country: None (occurrence: None)
  Receive Date: 20071012
  Receipt Date: 20071009
  Transmission Date: 20080405
  Serious: Yes (Hospitalization)
  Sender: FDA-Public Use
  Company Number: JP-ROXANE LABORATORIES, INC-2007-BP-22451RO

PATIENT
  Age: 81 Year
  Sex: Male

DRUGS (1)
  1. TERBINAFINE HYDROCHLORIDE [Suspect]
     Indication: TINEA PEDIS
     Route: 048

REACTIONS (2)
  - PSORIATIC ARTHROPATHY [None]
  - PUSTULAR PSORIASIS [None]
